FAERS Safety Report 10152079 (Version 1)
Quarter: 2014Q2

REPORT INFORMATION
  Report Type: Spontaneous
  Country: US (occurrence: US)
  Receive Date: 20140505
  Receipt Date: 20140505
  Transmission Date: 20141212
  Serious: No
  Sender: FDA-Public Use
  Company Number: US-BRISTOL-MYERS SQUIBB COMPANY-20429239

PATIENT
  Age: 63 Year
  Sex: Male
  Weight: 75.73 kg

DRUGS (2)
  1. FARXIGA [Suspect]
     Indication: TYPE 2 DIABETES MELLITUS
     Dosage: DOSE INCREASED:10 MG;5MGTWICE A DAY
     Dates: start: 2014
  2. METFORMIN HCL XR [Suspect]

REACTIONS (2)
  - Hypoglycaemia [Unknown]
  - Drug ineffective [Unknown]
